FAERS Safety Report 10645503 (Version 2)
Quarter: 2014Q4

REPORT INFORMATION
  Report Type: Spontaneous
  Country: BR (occurrence: BR)
  Receive Date: 20141211
  Receipt Date: 20141211
  Transmission Date: 20150529
  Serious: Yes (Hospitalization)
  Sender: FDA-Public Use
  Company Number: BR-ABBVIE-14P-020-1283205-00

PATIENT
  Age: 35 Year
  Sex: Female
  Weight: 78 kg

DRUGS (3)
  1. SYNTHROID [Suspect]
     Active Substance: LEVOTHYROXINE SODIUM
     Dosage: 176MCG
     Route: 048
     Dates: start: 201408, end: 20140823
  2. SYNTHROID [Suspect]
     Active Substance: LEVOTHYROXINE SODIUM
     Indication: HYPOTHYROIDISM
     Route: 048
  3. SYNTHROID [Suspect]
     Active Substance: LEVOTHYROXINE SODIUM
     Route: 048

REACTIONS (8)
  - Tachycardia [Recovered/Resolved]
  - Malaise [Recovered/Resolved]
  - Incorrect dosage administered [Recovered/Resolved]
  - Insomnia [Recovered/Resolved]
  - Hyperthyroidism [Recovered/Resolved]
  - Arrhythmia [Recovered/Resolved]
  - Cold sweat [Recovered/Resolved]
  - Headache [Recovered/Resolved]

NARRATIVE: CASE EVENT DATE: 201408
